FAERS Safety Report 8998704 (Version 1)
Quarter: 2013Q1

REPORT INFORMATION
  Report Type: Spontaneous
  Country: US (occurrence: US)
  Receive Date: 20130103
  Receipt Date: 20130103
  Transmission Date: 20140127
  Serious: No
  Sender: FDA-Public Use
  Company Number: US-PFIZER INC-2012289951

PATIENT
  Sex: Female

DRUGS (6)
  1. MOTRIN IB [Suspect]
     Dosage: UNK
  2. COMPAZINE [Suspect]
     Dosage: UNK
  3. TORADOL [Suspect]
     Dosage: UNK
  4. FLEXERIL [Concomitant]
     Dosage: UNK
  5. LIDODERM [Concomitant]
     Dosage: UNK
  6. VICODIN [Concomitant]
     Dosage: UNK

REACTIONS (1)
  - Drug hypersensitivity [Unknown]
